FAERS Safety Report 5233782-X (Version None)
Quarter: 2007Q1

REPORT INFORMATION
  Report Type: 
  Country: None (occurrence: None)
  Receive Date: 20061208
  Receipt Date: 20060817
  Transmission Date: 20070707
  Serious: Yes (Other)
  Sender: FDA-Public Use
  Company Number: 2006UW14701

PATIENT
  Age: 50 Year
  Sex: Male
  Weight: 111.13 kg

DRUGS (2)
  1. CRESTOR [Suspect]
     Indication: BLOOD CHOLESTEROL INCREASED
     Dosage: 10 MG PO
     Route: 048
  2. ATENOLOL [Concomitant]

REACTIONS (2)
  - MUSCLE SPASMS [None]
  - TENDON RUPTURE [None]
